FAERS Safety Report 6057846-6 (Version None)
Quarter: 2009Q1

REPORT INFORMATION
  Report Type: 
  Country: None (occurrence: None)
  Receive Date: 20090129
  Receipt Date: 20090119
  Transmission Date: 20090719
  Serious: Yes (Hospitalization)
  Sender: FDA-Public Use
  Company Number: US-ELI_LILLY_AND_COMPANY-US200901002667

PATIENT
  Sex: Female

DRUGS (6)
  1. ZYPREXA [Suspect]
     Indication: BIPOLAR DISORDER
     Dosage: 2.5 MG, DAILY (1/D)
     Dates: start: 20030101, end: 20080701
  2. LITHIUM [Concomitant]
     Dosage: 300 MG, UNK
  3. NORVASC [Concomitant]
  4. DETROL [Concomitant]
  5. GESTODENE AND ETHINYL ESTRADIOL [Concomitant]
     Dosage: UNK, MONTHLY (1/M)
  6. ARICEPT [Concomitant]

REACTIONS (3)
  - DYSKINESIA [None]
  - HOSPITALISATION [None]
  - TARDIVE DYSKINESIA [None]
